FAERS Safety Report 4849515-2 (Version None)
Quarter: 2005Q4

REPORT INFORMATION
  Report Type: 
  Country: None (occurrence: None)
  Receive Date: 20051209
  Receipt Date: 20051201
  Transmission Date: 20060501
  Serious: Yes (Other)
  Sender: FDA-Public Use
  Company Number: JP-ABBOTT-05P-087-0318528-00

PATIENT
  Age: 68 Year
  Sex: Male

DRUGS (6)
  1. SEVOFLURANE [Suspect]
     Indication: ANAESTHESIA
     Dosage: 0.7-1%
     Route: 055
  2. FENTANYL [Suspect]
     Indication: ANAESTHESIA
     Route: 065
  3. 5% ROPIVACAINE [Suspect]
     Indication: NERVE BLOCK
     Route: 065
  4. VECURONIUM BROMIDE [Concomitant]
     Indication: ANAESTHESIA
  5. PROPOFOL [Concomitant]
     Indication: ANAESTHESIA
     Dosage: 3 MICROGRAM/ML
  6. DROPERIDOL [Concomitant]
     Indication: ANAESTHESIA

REACTIONS (3)
  - BRADYCARDIA [None]
  - HYPOTENSION [None]
  - VENTRICULAR TACHYCARDIA [None]
